FAERS Safety Report 9563577 (Version 1)
Quarter: 2013Q3

REPORT INFORMATION
  Report Type: Spontaneous
  Country: IT (occurrence: None)
  Receive Date: 20130926
  Receipt Date: 20130926
  Transmission Date: 20140515
  Serious: Yes (Other)
  Sender: FDA-Public Use
  Company Number: GER/ITL/13/0034621

PATIENT
  Age: 71 Year
  Sex: Male

DRUGS (2)
  1. LANSOPRAZOLE [Suspect]
     Indication: PROPHYLAXIS AGAINST GASTROINTESTINAL ULCER
     Route: 048
     Dates: start: 20130902, end: 20130905
  2. DICLOREUM (DICLOFENAC SODIUM) [Suspect]
     Route: 048
     Dates: start: 20130902, end: 20130905

REACTIONS (1)
  - Angioedema [None]
